FAERS Safety Report 5219268-7 (Version None)
Quarter: 2007Q1

REPORT INFORMATION
  Report Type: 
  Country: None (occurrence: None)
  Receive Date: 20070123
  Receipt Date: 20070109
  Transmission Date: 20070707
  Serious: Yes (Other)
  Sender: FDA-Public Use
  Company Number: 100#08#2007-00061

PATIENT
  Age: 10 Year
  Sex: Male

DRUGS (17)
  1. SULFAMETHOXAZOLE + TRIMETHOPRIM (CO-TRIMOXAZOLE) [Suspect]
     Indication: DRUG USE FOR UNKNOWN INDICATION
  2. PARACETAMOL (PARACETAMOL) (PARACETAMOL) [Suspect]
     Indication: DRUG USE FOR UNKNOWN INDICATION
  3. PROBENECID [Concomitant]
  4. TEICOPLANIN (TEICOPLANIN) [Concomitant]
  5. CIPROFLOXACIN [Suspect]
     Indication: DRUG USE FOR UNKNOWN INDICATION
  6. ONDANSETRON (ONDANSETRON) (ONDANSETRON) [Suspect]
     Indication: DRUG USE FOR UNKNOWN INDICATION
  7. OMEPRAZOLE (OMEPRAZOLE) (OMEPRAZOLE) [Suspect]
     Indication: DRUG USE FOR UNKNOWN INDICATION
  8. RANITIDINE (RANITIDINE) (RANITIDINE) [Suspect]
     Indication: DRUG USE FOR UNKNOWN INDICATION
  9. MELPHALAN (MELPHALAN) (MELPHALAN) [Suspect]
     Indication: NON-HODGKIN'S LYMPHOMA
     Dosage: 140 MG/M2 (TOTAL DOSE)
  10. GRANULOCYTE COLONY STIMULATING FACTOR (GRANULOCYTE COLONY STIMULATING [Suspect]
     Indication: DRUG USE FOR UNKNOWN INDICATION
  11. PREDNISOLONE [Suspect]
     Indication: DRUG USE FOR UNKNOWN INDICATION
  12. LIPOSOMAL (AMPHOTERICIN (AMPHOTERICINE B, LIPOSOME) (LIPOSOMAL AMPHOTE [Suspect]
     Indication: DRUG USE FOR UNKNOWN INDICATION
  13. TACROLIMUS (TACROLIMUS) (TACROLIMUS) [Suspect]
     Indication: DRUG USE FOR UNKNOWN INDICATION
  14. TICARCILLIN + CLAVULANIC ACID (TICARCILLIN/CLAVULANATE POTASSIUM) (TIC [Concomitant]
  15. AMOXICILLIN + CLAVULANIC ACID (AMOXICILLIN W/CLAVULANATE POTASSIUM) (A [Concomitant]
  16. CEPHALOTHIN SODIUM (CEFALOTIN) (CEPHALOTHIN SODIUM) [Concomitant]
  17. CIDOFOVIR (CIDOFOVIR) (CIDOFOVIR) [Concomitant]

REACTIONS (3)
  - ADENOVIRUS INFECTION [None]
  - COMPLICATIONS OF BONE MARROW TRANSPLANT [None]
  - PANCREATITIS [None]
